FAERS Safety Report 21217494 (Version 2)
Quarter: 2022Q4

REPORT INFORMATION
  Report Type: Spontaneous
  Country: US (occurrence: US)
  Receive Date: 20220816
  Receipt Date: 20221006
  Transmission Date: 20230113
  Serious: No
  Sender: FDA-Public Use
  Company Number: US-PFIZER INC-202201057215

PATIENT
  Age: 52 Year
  Sex: Female
  Weight: 117.91 kg

DRUGS (13)
  1. PAXLOVID [Suspect]
     Active Substance: NIRMATRELVIR\RITONAVIR
     Indication: COVID-19 treatment
     Dosage: UNK
     Dates: start: 20220802, end: 20220807
  2. SIMVASTATIN [Concomitant]
     Active Substance: SIMVASTATIN
     Indication: Blood cholesterol increased
     Dosage: UNK
     Dates: start: 200811
  3. SIMVASTATIN [Concomitant]
     Active Substance: SIMVASTATIN
     Dosage: 40 MG
     Dates: start: 2009, end: 20220801
  4. SIMVASTATIN [Concomitant]
     Active Substance: SIMVASTATIN
     Dosage: UNK
     Dates: start: 20220809
  5. MEDROXIPROGESTERONA [MEDROXYPROGESTERONE] [Concomitant]
     Indication: Amenorrhoea
     Dosage: UNK
     Dates: start: 200811
  6. MEDROXIPROGESTERONA [MEDROXYPROGESTERONE] [Concomitant]
     Dosage: 10 MG (10 DAYS PER MONTH)
     Dates: start: 2009
  7. MEDROXIPROGESTERONA [MEDROXYPROGESTERONE] [Concomitant]
     Dosage: UNK
     Dates: start: 202112
  8. MEDROXIPROGESTERONA [MEDROXYPROGESTERONE] [Concomitant]
     Dosage: UNK (10 DAYS TO INDUCE PERIOD/EVERY MONTH)
     Dates: start: 20220722, end: 20220731
  9. MEDROXIPROGESTERONA [MEDROXYPROGESTERONE] [Concomitant]
     Dosage: 10 MG (10 DAYS PER MONTH)
  10. OMEPRAZOLE [Concomitant]
     Active Substance: OMEPRAZOLE
     Dosage: UNK
     Dates: start: 200811
  11. OMEPRAZOLE [Concomitant]
     Active Substance: OMEPRAZOLE
     Dosage: 20 MG
     Dates: start: 2009
  12. METFORMIN [Concomitant]
     Active Substance: METFORMIN HYDROCHLORIDE
     Dosage: UNK
     Dates: start: 202112
  13. METFORMIN [Concomitant]
     Active Substance: METFORMIN HYDROCHLORIDE
     Dosage: 500 MG
     Dates: start: 202111

REACTIONS (1)
  - Menstruation delayed [Recovered/Resolved]

NARRATIVE: CASE EVENT DATE: 20220803
